FAERS Safety Report 13436512 (Version 1)
Quarter: 2017Q2

REPORT INFORMATION
  Report Type: Spontaneous
  Country: JP (occurrence: JP)
  Receive Date: 20170413
  Receipt Date: 20170413
  Transmission Date: 20170830
  Serious: Yes (Hospitalization, Other)
  Sender: FDA-Public Use
  Company Number: JP-PFIZER INC-2017154454

PATIENT
  Age: 64 Year
  Sex: Male

DRUGS (1)
  1. CELECOX [Suspect]
     Active Substance: CELECOXIB
     Dosage: UNK

REACTIONS (6)
  - Pneumonia bacterial [Unknown]
  - Interstitial lung disease [Unknown]
  - Vomiting [Unknown]
  - Pyrexia [Unknown]
  - Back pain [Unknown]
  - Chest pain [Unknown]
